FAERS Safety Report 9711809 (Version 1)
Quarter: 2013Q4

REPORT INFORMATION
  Report Type: Spontaneous
  Country: US (occurrence: US)
  Receive Date: 20131126
  Receipt Date: 20131126
  Transmission Date: 20140711
  Serious: No
  Sender: FDA-Public Use
  Company Number: US-BRISTOL-MYERS SQUIBB COMPANY-19110535

PATIENT
  Age: 69 Year
  Sex: Female
  Weight: 102.04 kg

DRUGS (4)
  1. BYDUREON 2MG SUSPENSION [Suspect]
     Indication: TYPE 2 DIABETES MELLITUS
     Dosage: 5 DOSES
     Route: 058
     Dates: start: 20130616
  2. LANTUS [Concomitant]
     Dosage: 1DF:LANTUS SOLOSTAR SLIDING SCALE DOSE SQ INJECTION
     Route: 058
  3. GLIMEPIRIDE [Concomitant]
  4. AZOR [Concomitant]

REACTIONS (2)
  - Injection site haemorrhage [Unknown]
  - Injection site swelling [Recovering/Resolving]
